FAERS Safety Report 8057064-6 (Version None)
Quarter: 2012Q1

REPORT INFORMATION
  Report Type: 
  Country: None (occurrence: None)
  Receive Date: 20120119
  Receipt Date: 20120116
  Transmission Date: 20120608
  Serious: Yes (Death)
  Sender: FDA-Public Use
  Company Number: US-ROXANE LABORATORIES, INC.-2012-EU-00196GD

PATIENT
  Age: 25 Year
  Sex: Female

DRUGS (4)
  1. SALICYLIC ACID PREPARATIONS [Suspect]
     Dosage: ROUTE: INGESTION + INHALATION/NASAL
  2. MORPHINE [Suspect]
     Dosage: ROUTE: INGESTION + INHALATION/NASAL
  3. DIAZEPAM [Suspect]
     Dosage: ROUTE: INGESTION + INHALATION/NASAL
  4. DIPHENHYDRAMINE W/PARACETAMOL [Suspect]
     Dosage: ROUTE: INGESTION + INHALATION/NASAL

REACTIONS (1)
  - COMPLETED SUICIDE [None]
